FAERS Safety Report 16725720 (Version 1)
Quarter: 2019Q3

REPORT INFORMATION
  Report Type: Spontaneous
  Country: CN (occurrence: CN)
  Receive Date: 20190821
  Receipt Date: 20190821
  Transmission Date: 20191005
  Serious: Yes (Other)
  Sender: FDA-Public Use
  Company Number: CN-ROCHE-2376987

PATIENT
  Age: 59 Year
  Sex: Female
  Weight: 43 kg

DRUGS (6)
  1. AVASTIN [Suspect]
     Active Substance: BEVACIZUMAB
     Indication: METASTASES TO LUNG
     Dosage: BATCH NUMBER WAS NOT PROVIDED
     Route: 041
     Dates: start: 20190709, end: 20190709
  2. CISPLATIN. [Concomitant]
     Active Substance: CISPLATIN
     Indication: METASTASES TO LUNG
     Dosage: BATCH NUMBER WAS NOT PROVIDED
     Route: 041
     Dates: start: 20190709, end: 20190710
  3. CISPLATIN. [Concomitant]
     Active Substance: CISPLATIN
     Indication: ENDOMETRIAL CANCER
     Route: 041
     Dates: start: 20190802, end: 20190803
  4. PACLITAXEL. [Suspect]
     Active Substance: PACLITAXEL
     Indication: ENDOMETRIAL CANCER
     Route: 041
     Dates: start: 20190802, end: 20190802
  5. AVASTIN [Suspect]
     Active Substance: BEVACIZUMAB
     Indication: ENDOMETRIAL CANCER
     Route: 041
     Dates: start: 20190802, end: 20190802
  6. PACLITAXEL. [Suspect]
     Active Substance: PACLITAXEL
     Indication: METASTASES TO LUNG
     Dosage: BATCH NUMBER WAS NOT PROVIDED
     Route: 041
     Dates: start: 20190709, end: 20190709

REACTIONS (3)
  - Off label use [Unknown]
  - Intentional product use issue [Unknown]
  - Bone marrow failure [Recovering/Resolving]
